FAERS Safety Report 16339098 (Version 1)
Quarter: 2019Q2

REPORT INFORMATION
  Report Type: Spontaneous
  Country: GB (occurrence: GB)
  Receive Date: 20190521
  Receipt Date: 20190521
  Transmission Date: 20190711
  Serious: Yes (Other)
  Sender: FDA-Public Use
  Company Number: GB-PFIZER INC-2019206905

PATIENT
  Age: 41 Year
  Sex: Male
  Weight: 99 kg

DRUGS (11)
  1. IBUPROFEN. [Suspect]
     Active Substance: IBUPROFEN
     Dosage: 200 MG, UNK
     Dates: start: 20190410
  2. DOXYCYCLINE. [Concomitant]
     Active Substance: DOXYCYCLINE
     Dosage: 1 DF, UNK
     Dates: start: 20190209, end: 20190216
  3. DIHYDROCODEINE [Concomitant]
     Active Substance: DIHYDROCODEINE
     Dosage: 1 DF, UNK
     Dates: start: 20180627, end: 20190402
  4. PARACETAMOL [Concomitant]
     Active Substance: ACETAMINOPHEN
     Dosage: 2 DF, UNK
     Dates: start: 20190203, end: 20190203
  5. PREGABALIN. [Concomitant]
     Active Substance: PREGABALIN
     Dosage: 1 DF, UNK
     Dates: start: 20180329, end: 20190402
  6. CLOBETASONE BUTYRATE [Concomitant]
     Active Substance: CLOBETASONE BUTYRATE
     Indication: ECZEMA
     Dosage: SPARINGLY TO ECZEMA ON LEGS
     Dates: start: 20190320, end: 20190402
  7. OLANZAPINE. [Concomitant]
     Active Substance: OLANZAPINE
     Dosage: 1 DF, UNK
     Dates: start: 20181126, end: 20190402
  8. ERYTHROMYCIN. [Concomitant]
     Active Substance: ERYTHROMYCIN
     Dosage: 2 DF, UNK
     Dates: start: 20190207, end: 20190207
  9. FLUCLOXACILLIN [Concomitant]
     Active Substance: FLUCLOXACILLIN
     Dosage: 4 DF, DAILY (08:00, 12:00, 16:00, 20:00)
     Dates: start: 20190203, end: 20190210
  10. DOUBLEBASE [Concomitant]
     Active Substance: ISOPROPYL MYRISTATE\PARAFFIN
     Dosage: UNK, AS NEEDED
     Dates: start: 20190129, end: 20190402
  11. METHADONE [Concomitant]
     Active Substance: METHADONE HYDROCHLORIDE
     Dosage: 25 ML, UNK
     Dates: start: 20190322, end: 20190402

REACTIONS (1)
  - Haematuria [Unknown]

NARRATIVE: CASE EVENT DATE: 20190410
